FAERS Safety Report 11360234 (Version 1)
Quarter: 2015Q3

REPORT INFORMATION
  Report Type: Spontaneous
  Country: GB (occurrence: GB)
  Receive Date: 20150810
  Receipt Date: 20150810
  Transmission Date: 20151125
  Serious: Yes (Hospitalization)
  Sender: FDA-Public Use
  Company Number: GB-TEVA-583738ACC

PATIENT
  Age: 84 Year
  Sex: Female
  Weight: 55.2 kg

DRUGS (7)
  1. INSUMAN [Concomitant]
     Active Substance: INSULIN HUMAN
     Dosage: 14 UNITS AM, 16 UNITS PM
  2. LANSOPRAZOLE. [Suspect]
     Active Substance: LANSOPRAZOLE
     Dosage: 60 MILLIGRAM DAILY;
     Dates: start: 201506
  3. FERROUS GLUCONATE [Concomitant]
     Active Substance: FERROUS GLUCONATE
     Dosage: 600 MILLIGRAM DAILY;
  4. METFORMIN [Concomitant]
     Active Substance: METFORMIN HYDROCHLORIDE
     Dosage: 2 GRAM DAILY;
  5. NATEGLINIDE. [Concomitant]
     Active Substance: NATEGLINIDE
     Dosage: 180 MILLIGRAM DAILY;
  6. ADCAL-D3 [Concomitant]
     Active Substance: CALCIUM CARBONATE\CHOLECALCIFEROL
     Dosage: 2 DOSAGE FORMS DAILY;
  7. LANSOPRAZOLE. [Suspect]
     Active Substance: LANSOPRAZOLE
     Dosage: 30 MILLIGRAM DAILY; INCREASED TO 30MG TWICE A DAY IN JUNE 2015
     Route: 048
     Dates: start: 20140201, end: 201506

REACTIONS (1)
  - Hyponatraemia [Unknown]
